FAERS Safety Report 8336456-1 (Version None)
Quarter: 2012Q2

REPORT INFORMATION
  Report Type: 
  Country: None (occurrence: None)
  Receive Date: 20120504
  Receipt Date: 20120501
  Transmission Date: 20120825
  Serious: Yes (Hospitalization, Other)
  Sender: FDA-Public Use
  Company Number: US-PFIZER INC-2012106835

PATIENT
  Sex: Female
  Weight: 54.4 kg

DRUGS (5)
  1. FOSAMAX [Concomitant]
     Indication: OSTEOPOROSIS
     Dosage: UNK
  2. INSULIN [Concomitant]
     Indication: TYPE 1 DIABETES MELLITUS
     Dosage: UNK, 3X/DAY
  3. LYRICA [Suspect]
     Indication: FIBROMYALGIA
     Dosage: UNK
     Route: 048
     Dates: start: 20110701
  4. TRAMADOL [Concomitant]
     Indication: HIP FRACTURE
     Dosage: 100 MG, AS NEEDED
  5. LANTUS [Concomitant]
     Indication: TYPE 1 DIABETES MELLITUS
     Dosage: UNK
     Dates: start: 20040101

REACTIONS (3)
  - FOOT FRACTURE [None]
  - LOCALISED INFECTION [None]
  - CATARACT [None]
